FAERS Safety Report 17886706 (Version 11)
Quarter: 2024Q1

REPORT INFORMATION
  Report Type: Report from Study
  Country: JP (occurrence: JP)
  Receive Date: 20200612
  Receipt Date: 20240109
  Transmission Date: 20240410
  Serious: Yes (Hospitalization)
  Sender: FDA-Public Use
  Company Number: JP-ABBVIE-20K-087-3374772-00

PATIENT
  Age: 78 Year
  Sex: Male
  Weight: 75 kg

DRUGS (9)
  1. CARBIDOPA\LEVODOPA [Suspect]
     Active Substance: CARBIDOPA\LEVODOPA
     Indication: Parkinson^s disease
     Route: 050
     Dates: start: 20200131, end: 20201012
  2. CARBIDOPA\LEVODOPA [Suspect]
     Active Substance: CARBIDOPA\LEVODOPA
     Dosage: MD: 11.7 ML, CD: 2.4 ML/HR X 16 HOURS.
     Route: 050
     Dates: start: 20211224
  3. CARBIDOPA\LEVODOPA [Suspect]
     Active Substance: CARBIDOPA\LEVODOPA
     Dosage: MD: 11.7 ML, CD: 3.0 ML/HR ? 16 HRS, ED: 1 ML/UNIT ? 0
     Route: 050
     Dates: start: 20210616, end: 20210713
  4. CARBIDOPA\LEVODOPA [Suspect]
     Active Substance: CARBIDOPA\LEVODOPA
     Dosage: MD: 11.7 ML, CD: 2.7 ML/HR ? 16 HRS, ED: 1 ML/UNIT ? 0
     Route: 050
     Dates: start: 20201013, end: 20210615
  5. CARBIDOPA\LEVODOPA [Suspect]
     Active Substance: CARBIDOPA\LEVODOPA
     Dosage: MD: 11.7 ML, CD: 3.1 ML/HR ? 16 HRS, ED: 1 ML/UNIT ? 0
     Route: 050
     Dates: start: 20210714, end: 20211223
  6. ROPINIROLE [Concomitant]
     Active Substance: ROPINIROLE
     Indication: Parkinson^s disease
     Dosage: 32 MILLIGRAM HYDROCHLORIDE
     Route: 062
     Dates: start: 20210409
  7. CARBIDOPA AND LEVODOPA [Concomitant]
     Active Substance: CARBIDOPA\LEVODOPA
     Indication: Parkinson^s disease
     Dosage: CARBIDOPA HYDRATE AND LEVODOPA
     Route: 048
     Dates: start: 201707
  8. CARBIDOPA AND LEVODOPA [Concomitant]
     Active Substance: CARBIDOPA\LEVODOPA
     Indication: Parkinson^s disease
     Route: 048
  9. ROTIGOTINE [Concomitant]
     Active Substance: ROTIGOTINE
     Indication: Parkinson^s disease
     Route: 062
     Dates: end: 20210408

REACTIONS (11)
  - Psychiatric symptom [Unknown]
  - Parkinson^s disease [Unknown]
  - Mobility decreased [Unknown]
  - Posture abnormal [Unknown]
  - Stoma site pain [Unknown]
  - Stoma site discharge [Recovered/Resolved]
  - Stoma site haemorrhage [Recovered/Resolved]
  - Stoma site erythema [Recovering/Resolving]
  - Stoma site oedema [Recovering/Resolving]
  - Stoma site reaction [Unknown]
  - Stoma site discharge [Unknown]

NARRATIVE: CASE EVENT DATE: 20200101
